FAERS Safety Report 22962906 (Version 3)
Quarter: 2023Q4

REPORT INFORMATION
  Report Type: Spontaneous
  Country: CA (occurrence: CA)
  Receive Date: 20230920
  Receipt Date: 20231017
  Transmission Date: 20240110
  Serious: Yes (Other)
  Sender: FDA-Public Use
  Company Number: CA-PFIZER INC-202200122807

PATIENT
  Age: 85 Year
  Sex: Female
  Weight: 45 kg

DRUGS (6)
  1. RUXIENCE [Suspect]
     Active Substance: RITUXIMAB-PVVR
     Indication: Sjogren^s syndrome
     Dosage: 100 MG, WEEKLY FOR 4 WEEKS
     Route: 042
  2. RUXIENCE [Suspect]
     Active Substance: RITUXIMAB-PVVR
     Indication: Immune thrombocytopenia
     Dosage: 100 MG
     Route: 042
     Dates: start: 20230830
  3. RUXIENCE [Suspect]
     Active Substance: RITUXIMAB-PVVR
     Dosage: 100 MG
     Route: 042
     Dates: start: 20230906
  4. RUXIENCE [Suspect]
     Active Substance: RITUXIMAB-PVVR
     Dosage: 100 MG
     Route: 042
     Dates: start: 20230913
  5. RUXIENCE [Suspect]
     Active Substance: RITUXIMAB-PVVR
     Dosage: 100 MG
     Route: 042
     Dates: start: 20230920
  6. ACETAMINOPHEN [Concomitant]
     Active Substance: ACETAMINOPHEN
     Indication: Premedication
     Dosage: 825 MG (500 MG+325 MG)
     Dates: start: 20230913, end: 20230913

REACTIONS (10)
  - Fall [Unknown]
  - Limb injury [Unknown]
  - Blood pressure systolic increased [Unknown]
  - Flushing [Recovered/Resolved]
  - Acne [Recovered/Resolved]
  - Blood pressure fluctuation [Unknown]
  - Gait disturbance [Unknown]
  - Pruritus [Recovered/Resolved]
  - Rash macular [Not Recovered/Not Resolved]
  - Off label use [Unknown]

NARRATIVE: CASE EVENT DATE: 20230101
